FAERS Safety Report 7873959-8 (Version None)
Quarter: 2011Q4

REPORT INFORMATION
  Report Type: 
  Country: None (occurrence: None)
  Receive Date: 20111017
  Receipt Date: 20110223
  Transmission Date: 20120403
  Serious: Yes (Hospitalization)
  Sender: FDA-Public Use
  Company Number: 2011S1000125

PATIENT
  Sex: Female

DRUGS (5)
  1. CHOLESTEROL MEDICATION [Concomitant]
  2. PLAVIX [Concomitant]
  3. BLOOD PRESSURE MEDICATION [Concomitant]
  4. DARVOCET [Suspect]
     Indication: PAIN
     Dosage: (AS REQUIRED),ORAL
     Route: 048
     Dates: start: 19860101, end: 20101201
  5. HEART PILL [Concomitant]

REACTIONS (3)
  - CORONARY ARTERY DISEASE [None]
  - ANGINA PECTORIS [None]
  - MYOCARDIAL INFARCTION [None]
